FAERS Safety Report 7544759-3 (Version None)
Quarter: 2011Q2

REPORT INFORMATION
  Report Type: 
  Country: None (occurrence: None)
  Receive Date: 20110614
  Receipt Date: 20110608
  Transmission Date: 20111010
  Serious: No
  Sender: FDA-Public Use
  Company Number: US-BIOGENIDEC-2011BI021354

PATIENT
  Age: 49 Year
  Sex: Female

DRUGS (2)
  1. THYROID MEDICATION (NOS) [Concomitant]
     Indication: THYROID DISORDER
  2. TYSABRI [Suspect]
     Indication: MULTIPLE SCLEROSIS
     Route: 042
     Dates: start: 20101109

REACTIONS (6)
  - FATIGUE [None]
  - AGITATION [None]
  - RASH [None]
  - IRRITABILITY [None]
  - HALLUCINATION [None]
  - HYPERSENSITIVITY [None]
